FAERS Safety Report 5256546-X (Version None)
Quarter: 2007Q1

REPORT INFORMATION
  Report Type: 
  Country: None (occurrence: None)
  Receive Date: 20070306
  Receipt Date: 20070221
  Transmission Date: 20070707
  Serious: Yes (Death)
  Sender: FDA-Public Use
  Company Number: IL-NOVOPROD-260013

PATIENT
  Age: 32 Year
  Sex: Female
  Weight: 65 kg

DRUGS (5)
  1. NOVOSEVEN [Suspect]
     Indication: HAEMORRHAGE
     Dosage: 6 MG, SINGLE
     Route: 042
     Dates: start: 20070109, end: 20070109
  2. NOVOSEVEN [Suspect]
     Dosage: 6 MG, SINGLE
     Route: 042
     Dates: start: 20070112, end: 20070112
  3. FRESH FROZEN PLASMA [Concomitant]
  4. CRYOPRECIPITATES [Concomitant]
  5. BLOOD CELLS, PACKED HUMAN [Concomitant]

REACTIONS (3)
  - ACUTE RESPIRATORY DISTRESS SYNDROME [None]
  - MULTI-ORGAN FAILURE [None]
  - PULMONARY HAEMORRHAGE [None]
